FAERS Safety Report 11648335 (Version 2)
Quarter: 2015Q4

REPORT INFORMATION
  Report Type: Spontaneous
  Country: TR (occurrence: TR)
  Receive Date: 20151021
  Receipt Date: 20151109
  Transmission Date: 20160304
  Serious: Yes (Hospitalization, Other)
  Sender: FDA-Public Use
  Company Number: TR-SUN PHARMACEUTICAL INDUSTRIES LTD-2015RR-104005

PATIENT

DRUGS (5)
  1. PETHIDINE [Concomitant]
     Active Substance: MEPERIDINE
     Indication: PROCEDURAL PAIN
     Dosage: 5 MG, UNK
     Route: 042
  2. TRAMADOL. [Concomitant]
     Active Substance: TRAMADOL
     Indication: PROCEDURAL PAIN
     Dosage: 5 MG, UNK
     Route: 065
  3. PARANOX [Suspect]
     Active Substance: ACETAMINOPHEN\PHENOBARBITAL
     Indication: ANALGESIC THERAPY
     Dosage: 240 MG, QID
     Route: 054
  4. TRAMADOL. [Concomitant]
     Active Substance: TRAMADOL
     Indication: ANALGESIC THERAPY
     Dosage: 15 MG, SINGLE
     Route: 065
  5. PARACETAMOL [Suspect]
     Active Substance: ACETAMINOPHEN
     Indication: ANALGESIC THERAPY
     Dosage: 5 ML, QID (125 MG/5 ML ORAL LIQUID)
     Route: 048

REACTIONS (5)
  - Blood glucose decreased [None]
  - Acute hepatic failure [Recovered/Resolved]
  - Toxicity to various agents [Recovered/Resolved]
  - Haemoglobin decreased [None]
  - Hepatic encephalopathy [Recovered/Resolved]
